FAERS Safety Report 21034679 (Version 1)
Quarter: 2022Q3

REPORT INFORMATION
  Report Type: Spontaneous
  Country: GR (occurrence: GR)
  Receive Date: 20220701
  Receipt Date: 20220701
  Transmission Date: 20221027
  Serious: Yes (Other)
  Sender: FDA-Public Use
  Company Number: GR-ANFARM-2022018

PATIENT
  Age: 11 Year
  Sex: Female
  Weight: 31.6 kg

DRUGS (6)
  1. FORMOTEROL [Suspect]
     Active Substance: FORMOTEROL
     Indication: Asthma
     Dosage: 12 MICROGRAM, QD
     Route: 055
  2. FORMOTEROL [Suspect]
     Active Substance: FORMOTEROL
     Dosage: 24 MICROGRAM, QD
     Route: 055
  3. BECLOMETHASONE DIPROPIONATE [Suspect]
     Active Substance: BECLOMETHASONE DIPROPIONATE
     Indication: Asthma
     Dosage: 400 MICROGRAM, QD
     Route: 055
  4. BECLOMETHASONE DIPROPIONATE [Suspect]
     Active Substance: BECLOMETHASONE DIPROPIONATE
     Dosage: 200 MICROGRAM, QD
     Route: 055
  5. BUDESONIDE [Suspect]
     Active Substance: BUDESONIDE
     Indication: Product used for unknown indication
     Dosage: 200 MICROGRAM, QD
     Route: 045
  6. DEXAMETHASONE [Suspect]
     Active Substance: DEXAMETHASONE
     Indication: Asthma
     Dosage: UNK
     Route: 048

REACTIONS (1)
  - Growth failure [Recovered/Resolved]
